FAERS Safety Report 6069223-2 (Version None)
Quarter: 2009Q1

REPORT INFORMATION
  Report Type: 
  Country: None (occurrence: None)
  Receive Date: 20090206
  Receipt Date: 20090129
  Transmission Date: 20090719
  Serious: Yes (Other)
  Sender: FDA-Public Use
  Company Number: PHEH2009US01291

PATIENT
  Sex: Male

DRUGS (1)
  1. LAMISIL [Suspect]
     Dosage: 250 MG, UNK

REACTIONS (1)
  - MUSCLE FATIGUE [None]
